FAERS Safety Report 25492478 (Version 2)
Quarter: 2025Q3

REPORT INFORMATION
  Report Type: Spontaneous
  Country: US (occurrence: US)
  Receive Date: 20250630
  Receipt Date: 20250722
  Transmission Date: 20251021
  Serious: No
  Sender: JOHNSON AND JOHNSON
  Company Number: US-JNJFOC-20250635266

PATIENT
  Sex: Female

DRUGS (16)
  1. SPRAVATO [Suspect]
     Active Substance: ESKETAMINE
     Indication: Product used for unknown indication
     Dates: end: 20250626
  2. SPRAVATO [Suspect]
     Active Substance: ESKETAMINE
     Dates: start: 20250626, end: 20250626
  3. LEVOTHYROXINE [Concomitant]
     Active Substance: LEVOTHYROXINE
     Indication: Hypothyroidism
  4. LAMICTAL [Concomitant]
     Active Substance: LAMOTRIGINE
     Indication: Mood altered
  5. BUSPAN [Concomitant]
     Indication: Anxiety
  6. TOPAMAX [Concomitant]
     Active Substance: TOPIRAMATE
     Indication: Migraine
  7. WELLBUTRIN [Concomitant]
     Active Substance: BUPROPION HYDROCHLORIDE
     Indication: Depression
  8. MIGRANAL [Concomitant]
     Active Substance: DIHYDROERGOTAMINE MESYLATE
     Indication: Migraine
  9. LORAZEPAM [Concomitant]
     Active Substance: LORAZEPAM
     Indication: Anxiety
  10. ZOFRAN [Concomitant]
     Active Substance: ONDANSETRON HYDROCHLORIDE
     Indication: Nausea
  11. PRAZOSIN [Concomitant]
     Active Substance: PRAZOSIN
     Indication: Nightmare
  12. QUETIAPINE [Concomitant]
     Active Substance: QUETIAPINE
     Indication: Mood altered
  13. TEMAZEPAM [Concomitant]
     Active Substance: TEMAZEPAM
     Indication: Insomnia
  14. IBUPROFEN [Concomitant]
     Active Substance: IBUPROFEN
     Indication: Migraine
  15. TIZANIDINE [Concomitant]
     Active Substance: TIZANIDINE
     Indication: Migraine
  16. VALACYCLOVIR [Concomitant]
     Active Substance: VALACYCLOVIR HYDROCHLORIDE
     Indication: Antiviral prophylaxis

REACTIONS (10)
  - Micturition urgency [Unknown]
  - Taste disorder [Unknown]
  - Panic attack [Unknown]
  - Bladder pain [Unknown]
  - Feeling abnormal [Unknown]
  - Tremor [Unknown]
  - Nausea [Unknown]
  - Urethral pain [Unknown]
  - Diarrhoea [Unknown]
  - Anxiety [Unknown]
